FAERS Safety Report 6046920-6 (Version None)
Quarter: 2009Q1

REPORT INFORMATION
  Report Type: 
  Country: None (occurrence: None)
  Receive Date: 20090122
  Receipt Date: 20090114
  Transmission Date: 20090719
  Serious: Yes (Hospitalization)
  Sender: FDA-Public Use
  Company Number: US-ELI_LILLY_AND_COMPANY-US200901002585

PATIENT
  Age: 85 Year
  Sex: Female

DRUGS (1)
  1. HUMALOG [Suspect]
     Dosage: UNK, UNK
     Dates: start: 19960101

REACTIONS (4)
  - FALL [None]
  - HEAD INJURY [None]
  - INCORRECT DOSE ADMINISTERED [None]
  - UPPER LIMB FRACTURE [None]
